FAERS Safety Report 4797441-X (Version None)
Quarter: 2005Q4

REPORT INFORMATION
  Report Type: 
  Country: None (occurrence: None)
  Receive Date: 20051006
  Receipt Date: 20051006
  Transmission Date: 20060501
  Serious: Yes (Hospitalization)
  Sender: FDA-Public Use
  Company Number: None

PATIENT
  Age: 66 Year
  Sex: Female
  Weight: 75 kg

DRUGS (12)
  1. LEVOFLOXACIN [Suspect]
     Indication: PROPHYLAXIS
     Dosage: 250 MG PO Q48 H
     Route: 048
     Dates: start: 20040529, end: 20040601
  2. VANCOMYCIN [Suspect]
     Indication: ACUTE MYOCARDIAL INFARCTION
     Dosage: 1 GRAM IV PRN
     Route: 042
     Dates: start: 20040519, end: 20040601
  3. LANSOPRAZOLE [Concomitant]
  4. DOCUSATE [Concomitant]
  5. DIGOXIN [Concomitant]
  6. LEVOTHYROXINE [Concomitant]
  7. METOPROLOL [Concomitant]
  8. FEXOFENADINE HCL [Concomitant]
  9. FUROSEMIDE [Concomitant]
  10. HYDROCORTISONE [Concomitant]
  11. HYDROXYZINE [Concomitant]
  12. HEPARIN [Concomitant]

REACTIONS (4)
  - HAEMODIALYSIS [None]
  - RENAL FAILURE ACUTE [None]
  - SEPSIS [None]
  - TOXIC EPIDERMAL NECROLYSIS [None]
